FAERS Safety Report 4748427-2 (Version None)
Quarter: 2005Q3

REPORT INFORMATION
  Report Type: 
  Country: None (occurrence: None)
  Receive Date: 20050817
  Receipt Date: 20050809
  Transmission Date: 20060218
  Serious: Yes (Hospitalization)
  Sender: FDA-Public Use
  Company Number: 163-20785-05040016

PATIENT
  Age: 64 Year
  Sex: Male

DRUGS (6)
  1. THALOMID [Suspect]
     Indication: MULTIPLE MYELOMA
     Dosage: 50MG-600MG DAILY, ORAL
     Route: 048
     Dates: start: 20020726, end: 20041201
  2. THALOMID [Suspect]
     Indication: MULTIPLE MYELOMA
     Dosage: 50MG-600MG DAILY, ORAL
     Route: 048
     Dates: start: 20050111, end: 20050405
  3. THALOMID [Suspect]
     Indication: MULTIPLE MYELOMA
     Dosage: 50MG-600MG DAILY, ORAL
     Route: 048
     Dates: start: 20050406
  4. MULTIVITAMIN [Concomitant]
  5. PROTONIX [Concomitant]
  6. DEXAMETHASONE [Concomitant]

REACTIONS (5)
  - ABDOMINAL PAIN [None]
  - GASTROINTESTINAL HYPOMOTILITY [None]
  - PELVIC PAIN [None]
  - PYREXIA [None]
  - WEIGHT DECREASED [None]
